FAERS Safety Report 5975980-3 (Version None)
Quarter: 2008Q4

REPORT INFORMATION
  Report Type: 
  Country: None (occurrence: None)
  Receive Date: 20081202
  Receipt Date: 20081121
  Transmission Date: 20090506
  Serious: Yes (Death, Hospitalization)
  Sender: FDA-Public Use
  Company Number: NL-JNJFOC-20080605788

PATIENT
  Sex: Female
  Weight: 57 kg

DRUGS (10)
  1. INFLIXIMAB, RECOMBINANT [Suspect]
     Indication: RHEUMATOID ARTHRITIS
  2. METHOTREXATE [Suspect]
     Indication: RHEUMATOID ARTHRITIS
  3. ACTONEL [Suspect]
     Indication: RHEUMATOID ARTHRITIS
  4. FOLIC ACID [Concomitant]
  5. CALCICHEW D [Concomitant]
  6. LIPITOR [Concomitant]
  7. METOPROLOL [Concomitant]
  8. CO-APROVEL [Concomitant]
  9. ASCAL [Concomitant]
  10. INSULINE [Concomitant]

REACTIONS (4)
  - GASTRIC CANCER STAGE IV [None]
  - HEPATIC FUNCTION ABNORMAL [None]
  - IRON DEFICIENCY ANAEMIA [None]
  - TUMOUR LYSIS SYNDROME [None]
